FAERS Safety Report 9934714 (Version 1)
Quarter: 2014Q1

REPORT INFORMATION
  Report Type: Spontaneous
  Country: MX (occurrence: MX)
  Receive Date: 20140228
  Receipt Date: 20140228
  Transmission Date: 20141002
  Serious: Yes (Disabling)
  Sender: FDA-Public Use
  Company Number: PHHY2014MX025010

PATIENT
  Sex: Female

DRUGS (1)
  1. TEGRETOL [Suspect]
     Indication: EPILEPSY
     Dosage: 2 DF, DAILY
     Route: 048

REACTIONS (2)
  - Paralysis [Not Recovered/Not Resolved]
  - Deformity [Not Recovered/Not Resolved]
